FAERS Safety Report 5344159-0 (Version None)
Quarter: 2007Q2

REPORT INFORMATION
  Report Type: 
  Country: None (occurrence: None)
  Receive Date: 20070604
  Receipt Date: 20070524
  Transmission Date: 20071010
  Serious: Yes (Hospitalization)
  Sender: FDA-Public Use
  Company Number: DE-SANOFI-SYNTHELABO-A01200704570

PATIENT
  Sex: Female
  Weight: 65 kg

DRUGS (1)
  1. ISCOVER [Suspect]
     Indication: CEREBROVASCULAR ACCIDENT
     Route: 048

REACTIONS (2)
  - SPLENIC HAEMORRHAGE [None]
  - SPLENIC RUPTURE [None]
